FAERS Safety Report 8583070-9 (Version None)
Quarter: 2012Q3

REPORT INFORMATION
  Report Type: 
  Country: None (occurrence: None)
  Receive Date: 20120809
  Receipt Date: 20120806
  Transmission Date: 20120928
  Serious: Yes (Death)
  Sender: FDA-Public Use
  Company Number: US-CELGENEUS-163-21880-12053159

PATIENT
  Sex: Female
  Weight: 104.42 kg

DRUGS (7)
  1. POTASSIUM CHLORIDE [Concomitant]
     Dosage: 10 MILLIEQUIVALENTS
     Route: 065
  2. ALLOPURINOL [Concomitant]
     Dosage: 100 MILLIGRAM
     Route: 065
  3. GABAPENTIN [Concomitant]
     Dosage: 100 MILLIGRAM
     Route: 065
  4. VALACYCLOVIR HYDROCHLORIDE [Concomitant]
     Dosage: 500 MILLIGRAM
     Route: 065
  5. REVLIMID [Suspect]
     Indication: MULTIPLE MYELOMA
     Dosage: 25 MILLIGRAM
     Route: 048
     Dates: start: 20120427, end: 20120523
  6. DEXAMETHASONE [Concomitant]
     Dosage: 4 MILLIGRAM
     Route: 065
  7. METOPROLOL TARTRATE [Concomitant]
     Dosage: 25 MILLIGRAM
     Route: 065

REACTIONS (4)
  - MULTIPLE MYELOMA [None]
  - PNEUMONIA [None]
  - SEPSIS [None]
  - PANCYTOPENIA [None]
